FAERS Safety Report 23425865 (Version 3)
Quarter: 2024Q3

REPORT INFORMATION
  Report Type: Report from Study
  Country: CA (occurrence: CA)
  Receive Date: 20240122
  Receipt Date: 20240711
  Transmission Date: 20241017
  Serious: Yes (Death, Hospitalization, Other)
  Sender: GLAXOSMITHKLINE
  Company Number: CA-GLAXOSMITHKLINE-CA2023121598

PATIENT

DRUGS (2)
  1. MEPOLIZUMAB [Suspect]
     Active Substance: MEPOLIZUMAB
     Indication: Asthma
     Dosage: 100 MG, Q4W
     Route: 058
     Dates: start: 20190314
  2. PREDNISONE [Concomitant]
     Active Substance: PREDNISONE
     Indication: Product used for unknown indication
     Dosage: UNK

REACTIONS (15)
  - Death [Fatal]
  - Fall [Not Recovered/Not Resolved]
  - Asthenia [Unknown]
  - Wound treatment [Unknown]
  - Dyspnoea [Unknown]
  - Wound infection [Unknown]
  - Infection [Not Recovered/Not Resolved]
  - Delirium [Not Recovered/Not Resolved]
  - Heart rate irregular [Unknown]
  - Limb injury [Unknown]
  - Skin laceration [Unknown]
  - Peripheral swelling [Unknown]
  - Pain in extremity [Unknown]
  - Erythema [Unknown]
  - Condition aggravated [Unknown]

NARRATIVE: CASE EVENT DATE: 20231201
